FAERS Safety Report 16372185 (Version 3)
Quarter: 2021Q2

REPORT INFORMATION
  Report Type: Spontaneous
  Country: VE (occurrence: VE)
  Receive Date: 20190530
  Receipt Date: 20210515
  Transmission Date: 20210716
  Serious: Yes (Hospitalization, Other)
  Sender: FDA-Public Use
  Company Number: PHHY2019VE123841

PATIENT
  Sex: Male

DRUGS (2)
  1. GLIVEC [Suspect]
     Active Substance: IMATINIB MESYLATE
     Indication: CHRONIC MYELOID LEUKAEMIA
     Dosage: 4 DF, 400 MG (4 OF 100 MG)
     Route: 065
  2. GLIVEC [Suspect]
     Active Substance: IMATINIB MESYLATE
     Dosage: 4 DF, 400 MG (4 OF 100 MG)
     Route: 065

REACTIONS (4)
  - Intestinal perforation [Unknown]
  - Ulcer [Unknown]
  - Abdominal wall abscess [Unknown]
  - Peritonitis [Unknown]
